FAERS Safety Report 11293593 (Version 1)
Quarter: 2015Q3

REPORT INFORMATION
  Report Type: Spontaneous
  Country: US (occurrence: US)
  Receive Date: 20150722
  Receipt Date: 20150722
  Transmission Date: 20151125
  Serious: No
  Sender: FDA-Public Use
  Company Number: US-GE HEALTHCARE MEDICAL DIAGNOSTICS-CRTC-PR-1505S-0001

PATIENT
  Sex: Female

DRUGS (2)
  1. CERETEC [Suspect]
     Active Substance: EXAMETAZIME\TECHNETIUM TC-99M EXAMETAZIME
     Indication: DIAGNOSTIC PROCEDURE
  2. CERETEC [Suspect]
     Active Substance: EXAMETAZIME\TECHNETIUM TC-99M EXAMETAZIME
     Indication: OSTEOMYELITIS
     Dosage: DOSE NOT REPORTED
     Route: 042
     Dates: start: 20150504, end: 20150504

REACTIONS (2)
  - No adverse event [None]
  - Radioisotope scan abnormal [Unknown]
